FAERS Safety Report 9520650 (Version 2)
Quarter: 2013Q4

REPORT INFORMATION
  Report Type: Spontaneous
  Country: FR (occurrence: FR)
  Receive Date: 20130913
  Receipt Date: 20131216
  Transmission Date: 20140711
  Serious: Yes (Other)
  Sender: FDA-Public Use
  Company Number: FR-ASTRAZENECA-2013SE68050

PATIENT
  Age: 19095 Day
  Sex: Female
  Weight: 93 kg

DRUGS (5)
  1. XEROQUEL [Suspect]
     Indication: BIPOLAR I DISORDER
     Route: 048
     Dates: start: 20121003, end: 20121026
  2. MIRTAZAPINE [Concomitant]
     Indication: DEPRESSION
     Dosage: 15 MG TWO TABLETS AT 22:00
     Route: 048
     Dates: start: 201201
  3. SERESTA [Concomitant]
     Route: 048
  4. GLUCOPHAGE [Concomitant]
     Indication: TYPE 1 DIABETES MELLITUS
     Route: 048
  5. NOVONORM [Concomitant]
     Indication: TYPE 1 DIABETES MELLITUS
     Dosage: 0.5 MG TWO TABLETS TWO TIMES PER DAY
     Route: 048

REACTIONS (2)
  - VIIth nerve paralysis [Recovered/Resolved]
  - Dysarthria [Recovered/Resolved]
